FAERS Safety Report 8968699 (Version 2)
Quarter: 2013Q1

REPORT INFORMATION
  Report Type: Spontaneous
  Country: GB (occurrence: GB)
  Receive Date: 20121218
  Receipt Date: 20130131
  Transmission Date: 20140127
  Serious: Yes (Hospitalization, Disabling)
  Sender: FDA-Public Use
  Company Number: GB-PFIZER INC-2012319327

PATIENT
  Age: 45 Year
  Sex: Male

DRUGS (1)
  1. CHAMPIX [Suspect]
     Indication: SMOKING CESSATION THERAPY
     Dosage: UNK
     Dates: start: 201207

REACTIONS (7)
  - Loss of consciousness [Unknown]
  - Fall [Unknown]
  - Neck injury [Unknown]
  - Back injury [Unknown]
  - Musculoskeletal discomfort [Unknown]
  - Somnambulism [Unknown]
  - Abnormal dreams [Unknown]
